FAERS Safety Report 9068417 (Version 1)
Quarter: 2013Q1

REPORT INFORMATION
  Report Type: Spontaneous
  Country: GR (occurrence: GR)
  Receive Date: 20130128
  Receipt Date: 20130128
  Transmission Date: 20140127
  Serious: Yes (Other)
  Sender: FDA-Public Use
  Company Number: GR-ROCHE-1182196

PATIENT
  Sex: Female

DRUGS (1)
  1. RIVOTRIL [Suspect]
     Indication: CONVULSION
     Route: 065

REACTIONS (2)
  - Jaundice neonatal [Recovered/Resolved]
  - Maternal exposure timing unspecified [Unknown]
